FAERS Safety Report 18225264 (Version 2)
Quarter: 2020Q4

REPORT INFORMATION
  Report Type: Report from Study
  Country: US (occurrence: US)
  Receive Date: 20200903
  Receipt Date: 20201104
  Transmission Date: 20210113
  Serious: Yes (Hospitalization)
  Sender: FDA-Public Use
  Company Number: US-TAIHO ONCOLOGY  INC-EU-2020-03129

PATIENT
  Age: 69 Year
  Sex: Female
  Weight: 54.1 kg

DRUGS (15)
  1. DEXAMETHASONE. [Concomitant]
     Active Substance: DEXAMETHASONE
     Route: 048
     Dates: start: 20200827
  2. HEPARIN [Concomitant]
     Active Substance: HEPARIN SODIUM
     Route: 058
     Dates: start: 20200827
  3. TAS-102 [Suspect]
     Active Substance: TIPIRACIL HYDROCHLORIDE\TRIFLURIDINE
     Indication: ADENOCARCINOMA PANCREAS
     Dosage: CURRENT CYCLE UNKNOWN
     Route: 048
     Dates: start: 20200727, end: 20200810
  4. TAS-102 [Suspect]
     Active Substance: TIPIRACIL HYDROCHLORIDE\TRIFLURIDINE
     Dosage: CYCLE UNKNOWN
     Route: 048
     Dates: start: 20200825
  5. AMITIZA [Concomitant]
     Active Substance: LUBIPROSTONE
     Route: 048
     Dates: start: 20200827
  6. LACTATED RINGERS SOLUTION [Concomitant]
     Active Substance: CALCIUM CHLORIDE\POTASSIUM CHLORIDE\SODIUM CHLORIDE\SODIUM LACTATE
     Dosage: 1,000 ML IV  100 ML/HR
     Route: 042
  7. GEMCITABINE. [Suspect]
     Active Substance: GEMCITABINE
     Dosage: CURRENT CYCLE UNKNOWN
     Route: 042
     Dates: start: 20200825
  8. MINERAL OIL ENEMA [Concomitant]
     Active Substance: MINERAL OIL
     Route: 054
     Dates: start: 20200827
  9. DOCUSATE-SENNA [Concomitant]
     Dosage: 50 MG - 8.6 MG, TAKE 2 TABLET TWICE DAILY
     Route: 048
     Dates: start: 20200828
  10. FENTANYL. [Concomitant]
     Active Substance: FENTANYL
     Dosage: 25 MCG/HR TRANSDERMAL FILM, EXTENDED RELEASE
     Route: 062
     Dates: start: 20200827
  11. GEMCITABINE. [Suspect]
     Active Substance: GEMCITABINE
     Indication: ADENOCARCINOMA PANCREAS
     Dosage: CURRENT CYCLE UNKNOWN
     Route: 042
     Dates: start: 20200727, end: 20200810
  12. NAB-PACLITAXEL [Suspect]
     Active Substance: PACLITAXEL
     Indication: ADENOCARCINOMA PANCREAS
     Dosage: CURRENT CYCLE UNKNOWN
     Route: 042
     Dates: start: 20200727, end: 20200810
  13. NAB-PACLITAXEL [Suspect]
     Active Substance: PACLITAXEL
     Dosage: CURRENT CYCLE UNKNOWN
     Route: 042
     Dates: start: 20200825
  14. PEPCID [Concomitant]
     Active Substance: FAMOTIDINE
     Route: 042
     Dates: start: 20200827
  15. LACTULOSE. [Concomitant]
     Active Substance: LACTULOSE
     Dosage: 10 G/15 ML, 4 TIMES A DAY
     Route: 048
     Dates: start: 20200828

REACTIONS (3)
  - Constipation [Recovered/Resolved]
  - Vomiting [Recovered/Resolved]
  - Abdominal pain [Not Recovered/Not Resolved]

NARRATIVE: CASE EVENT DATE: 20200826
